FAERS Safety Report 7793071-6 (Version None)
Quarter: 2011Q3

REPORT INFORMATION
  Report Type: 
  Country: None (occurrence: None)
  Receive Date: 20110930
  Receipt Date: 20110930
  Transmission Date: 20111222
  Serious: Yes (Other)
  Sender: FDA-Public Use
  Company Number: None

PATIENT
  Age: 85 Year
  Sex: Male
  Weight: 68.0396 kg

DRUGS (1)
  1. PACERONE [Suspect]
     Indication: ARRHYTHMIA
     Dosage: 200 MG 1 A DAY
     Dates: start: 20101110, end: 20110411

REACTIONS (26)
  - PAIN [None]
  - HALLUCINATION [None]
  - EATING DISORDER [None]
  - HYPOAESTHESIA [None]
  - CONSTIPATION [None]
  - INSOMNIA [None]
  - TREMOR [None]
  - PHOTOPHOBIA [None]
  - OESOPHAGEAL PAIN [None]
  - DEPRESSION [None]
  - EXTRASYSTOLES [None]
  - HEADACHE [None]
  - CHEST PAIN [None]
  - DYSPNOEA [None]
  - ALOPECIA [None]
  - IMPAIRED DRIVING ABILITY [None]
  - WEIGHT DECREASED [None]
  - FEELING HOT [None]
  - GASTROINTESTINAL DISORDER [None]
  - CRYING [None]
  - DIZZINESS [None]
  - MALAISE [None]
  - THINKING ABNORMAL [None]
  - ILL-DEFINED DISORDER [None]
  - SHOCK [None]
  - ASTHENIA [None]
